FAERS Safety Report 7756206-7 (Version None)
Quarter: 2011Q3

REPORT INFORMATION
  Report Type: 
  Country: None (occurrence: None)
  Receive Date: 20110916
  Receipt Date: 20110907
  Transmission Date: 20111222
  Serious: Yes (Death, Hospitalization)
  Sender: FDA-Public Use
  Company Number: US-CELGENEUS-163-21880-10092707

PATIENT
  Sex: Male
  Weight: 58.96 kg

DRUGS (1)
  1. REVLIMID [Suspect]
     Dosage: 25 MILLIGRAM
     Route: 048
     Dates: start: 20100609, end: 20100923

REACTIONS (3)
  - MUSCULAR WEAKNESS [None]
  - BONE MARROW FAILURE [None]
  - HEPATIC NEOPLASM MALIGNANT [None]
